FAERS Safety Report 18852857 (Version 1)
Quarter: 2021Q1

REPORT INFORMATION
  Report Type: Spontaneous
  Country: CN (occurrence: CN)
  Receive Date: 20210205
  Receipt Date: 20210205
  Transmission Date: 20210420
  Serious: Yes (Hospitalization, Other)
  Sender: FDA-Public Use
  Company Number: CN-009507513-2102CHN001095

PATIENT
  Age: 57 Year
  Sex: Male
  Weight: 69 kg

DRUGS (6)
  1. SODIUM CHLORIDE. [Concomitant]
     Active Substance: SODIUM CHLORIDE
     Dosage: 100 MILLILITER
     Dates: start: 20200901
  2. KEYTRUDA [Suspect]
     Active Substance: PEMBROLIZUMAB
     Indication: LUNG OPACITY
     Dosage: 200 MILLIGRAM, ON DAY 1 AND DAY 22
     Route: 041
     Dates: start: 20200901, end: 20200922
  3. PARAPLATIN [Concomitant]
     Active Substance: CARBOPLATIN
     Indication: LUNG OPACITY
     Dosage: 500 MILLIGRAM (ALOS REPORTED AS 0.6 G), ON DAY 1
     Route: 041
     Dates: start: 20200901, end: 20200901
  4. PACLITAXEL ALBUMIN [Concomitant]
     Active Substance: PACLITAXEL
     Indication: LUNG OPACITY
     Dosage: 240 MILLIGRAM ON DAY 1 AND DAY 8
     Route: 041
     Dates: start: 20200901, end: 20200908
  5. SODIUM CHLORIDE. [Concomitant]
     Active Substance: SODIUM CHLORIDE
     Dosage: 500 MILLILITER
     Dates: start: 20200901
  6. SODIUM CHLORIDE. [Concomitant]
     Active Substance: SODIUM CHLORIDE
     Dosage: 100 MILLILITER
     Dates: start: 20200901

REACTIONS (4)
  - Product use in unapproved indication [Unknown]
  - Pneumonectomy [Unknown]
  - Infection [Unknown]
  - Hypopituitarism [Recovering/Resolving]

NARRATIVE: CASE EVENT DATE: 20200901
